FAERS Safety Report 6423913-8 (Version None)
Quarter: 2009Q4

REPORT INFORMATION
  Report Type: 
  Country: None (occurrence: None)
  Receive Date: 20091028
  Receipt Date: 20091013
  Transmission Date: 20100525
  Serious: Yes (Hospitalization)
  Sender: FDA-Public Use
  Company Number: RENA-1000569

PATIENT
  Age: 52 Year
  Sex: Male

DRUGS (11)
  1. RENAGEL [Suspect]
     Indication: HYPERPHOSPHATAEMIA
     Dosage: ORAL
     Route: 048
     Dates: start: 20050101
  2. RANITIDINE HYDROCHLORIDE [Suspect]
     Dosage: ORAL
     Route: 048
     Dates: start: 20050101
  3. AMLODIPINE BESYLATE [Suspect]
     Dosage: ORAL
     Route: 048
     Dates: start: 20050101
  4. PLAVIX [Suspect]
     Dosage: ORAL
     Route: 048
     Dates: start: 20050101
  5. MINOXIDIL [Suspect]
     Dosage: ORAL
     Route: 048
     Dates: start: 20050101
  6. CELECTOL [Suspect]
     Dosage: 200 MG QD, ORAL
     Route: 048
     Dates: start: 20050101
  7. ATORVASTATIN CALCIUM [Suspect]
     Dosage: ORAL
     Route: 048
     Dates: start: 20050101
  8. LANTUS [Suspect]
     Indication: DIABETES MELLITUS
     Dosage: 6 U, QD, SUBCUTANEOUS
     Route: 058
     Dates: start: 20050101
  9. APIDRA (INSULIN GLARGINE) [Suspect]
     Dosage: SUBCUTANEOUS
     Route: 058
     Dates: start: 20050101
  10. KAYEXALATE [Suspect]
     Dosage: ORAL
     Route: 048
     Dates: start: 20050101
  11. XANAX [Suspect]
     Dosage: ORAL
     Route: 048
     Dates: start: 20050101

REACTIONS (5)
  - ABDOMINAL PAIN UPPER [None]
  - EOSINOPHILIA [None]
  - HYPERTRIGLYCERIDAEMIA [None]
  - PANCREATITIS [None]
  - PSEUDOCYST [None]
